FAERS Safety Report 10371383 (Version 1)
Quarter: 2014Q3

REPORT INFORMATION
  Report Type: Spontaneous
  Country: CA (occurrence: None)
  Receive Date: 20140806
  Receipt Date: 20140806
  Transmission Date: 20150326
  Serious: Yes (Other)
  Sender: FDA-Public Use
  Company Number: BD-2014-0046

PATIENT
  Age: 16 Year

DRUGS (11)
  1. CLARITHROMYCIN (CLARITHROMYCIN) [Concomitant]
     Active Substance: CLARITHROMYCIN
  2. HYDROXYZINE (HYDROXYZINE) [Concomitant]
     Active Substance: HYDROXYZINE HYDROCHLORIDE
  3. ONDANSETRON (ONDANSETRON) UNKNOWN [Suspect]
     Active Substance: ONDANSETRON
     Indication: VOMITING
     Route: 048
  4. AMOXICILLIN (AMOXICILLIN) [Concomitant]
     Active Substance: AMOXICILLIN
  5. POTASSIUM (POTASSIUM) [Concomitant]
     Active Substance: POTASSIUM
  6. DIPHENHYDRAMINE (DIPHENHYDRAMINE) [Suspect]
     Active Substance: DIPHENHYDRAMINE
     Indication: PRODUCT USED FOR UNKNOWN INDICATION
  7. ONDANSETRON (ONDANSETRON) UNKNOWN [Suspect]
     Active Substance: ONDANSETRON
     Indication: CLOSTRIDIUM DIFFICILE COLITIS
     Route: 048
  8. TRIMETHOPRIM SULFAMETHOXAZOLE (SULFAMETHOXAZOLE TRIMETHOPRIM)? [Concomitant]
  9. ONDANSETRON (ONDANSETRON) UNKNOWN [Suspect]
     Active Substance: ONDANSETRON
     Indication: HELICOBACTER INFECTION
     Route: 048
  10. METRONIDAZOLE (METRONIDAZOLE) [Concomitant]
     Active Substance: METRONIDAZOLE
  11. PANTOPRAZOLE (PANTOPRAZOLE) [Concomitant]
     Active Substance: PANTOPRAZOLE SODIUM

REACTIONS (4)
  - Ventricular extrasystoles [None]
  - Electrocardiogram QT prolonged [None]
  - Torsade de pointes [None]
  - Ventricular tachycardia [None]
